FAERS Safety Report 4331851-X (Version None)
Quarter: 2004Q2

REPORT INFORMATION
  Report Type: 
  Country: None (occurrence: None)
  Receive Date: 20040405
  Receipt Date: 20031203
  Transmission Date: 20050107
  Serious: No
  Sender: FDA-Public Use
  Company Number: US-GLAXOSMITHKLINE-A0441747A

PATIENT
  Age: 60 Year
  Sex: Female

DRUGS (11)
  1. FLOVENT [Suspect]
     Indication: ASTHMA
     Dosage: 1PUFF TWICE PER DAY
     Route: 055
     Dates: start: 19950101, end: 20031119
  2. ALBUTEROL [Concomitant]
  3. VICODIN [Concomitant]
  4. ACTILAX [Concomitant]
  5. SYNTHROID [Concomitant]
  6. LEVBID [Concomitant]
  7. HYDROCOT [Concomitant]
  8. TOPROL-XL [Concomitant]
  9. LORAZEPAM [Concomitant]
  10. CLARITIN [Concomitant]
  11. MUSCLE RELAXER [Concomitant]

REACTIONS (1)
  - DRUG INEFFECTIVE [None]
